FAERS Safety Report 4695863-9 (Version None)
Quarter: 2005Q2

REPORT INFORMATION
  Report Type: 
  Country: None (occurrence: None)
  Receive Date: 20050621
  Receipt Date: 20050614
  Transmission Date: 20051028
  Serious: Yes (Death)
  Sender: FDA-Public Use
  Company Number: CH-SANOFI-SYNTHELABO-A01200504237

PATIENT

DRUGS (5)
  1. ELOXATIN [Suspect]
     Route: 042
     Dates: end: 20030401
  2. XELODA [Concomitant]
     Route: 048
     Dates: end: 20030401
  3. CAMPTO [Concomitant]
     Dates: start: 20041201, end: 20050126
  4. 5-FU [Concomitant]
     Dates: start: 20041201, end: 20050126
  5. LEUCOVORIN [Concomitant]
     Dates: start: 20041201, end: 20050126

REACTIONS (7)
  - CARCINOEMBRYONIC ANTIGEN INCREASED [None]
  - COLON NEOPLASM [None]
  - HEPATIC FAILURE [None]
  - LYMPHADENOPATHY [None]
  - METASTASES TO LIVER [None]
  - METASTASIS [None]
  - POST PROCEDURAL COMPLICATION [None]
